FAERS Safety Report 22206324 (Version 10)
Quarter: 2023Q2

REPORT INFORMATION
  Report Type: Report from Study
  Country: VN (occurrence: VN)
  Receive Date: 20230413
  Receipt Date: 20230627
  Transmission Date: 20230721
  Serious: Yes (Life-Threatening, Hospitalization, Other)
  Sender: FDA-Public Use
  Company Number: VN-ASTELLAS-2023US011591

PATIENT
  Age: 65 Year
  Sex: Female

DRUGS (13)
  1. ENFORTUMAB VEDOTIN [Suspect]
     Active Substance: ENFORTUMAB VEDOTIN
     Indication: Bladder cancer
     Dosage: 1.25 MG/KG, ONCE/SINGLE ADMINISTRATION
     Route: 042
     Dates: start: 20230201, end: 20230201
  2. ENFORTUMAB VEDOTIN [Suspect]
     Active Substance: ENFORTUMAB VEDOTIN
     Dosage: 1.25 MG/KG, ONCE/SINGLE ADMINISTRATION
     Route: 042
     Dates: start: 20230208, end: 20230208
  3. ENFORTUMAB VEDOTIN [Suspect]
     Active Substance: ENFORTUMAB VEDOTIN
     Dosage: 1.25 MG/KG, ONCE/SINGLE ADMINISTRATION
     Route: 042
     Dates: start: 20230303, end: 20230303
  4. ENFORTUMAB VEDOTIN [Suspect]
     Active Substance: ENFORTUMAB VEDOTIN
     Dosage: 1.25 MG/KG, ONCE/SINGLE ADMINISTRATION
     Route: 042
     Dates: start: 20230310, end: 20230310
  5. ENFORTUMAB VEDOTIN [Suspect]
     Active Substance: ENFORTUMAB VEDOTIN
     Dosage: 1.25 MG/KG, ONCE/SINGLE ADMINISTRATION
     Route: 042
     Dates: start: 20230324, end: 20230324
  6. ENFORTUMAB VEDOTIN [Suspect]
     Active Substance: ENFORTUMAB VEDOTIN
     Dosage: 1.25 MG/KG, ONCE/SINGLE ADMINISTRATION
     Route: 042
     Dates: start: 20230329, end: 20230329
  7. DURVALUMAB [Suspect]
     Active Substance: DURVALUMAB
     Indication: Bladder cancer
     Dosage: 1500 MG, OTHER (ONCE/SINGLE ADMINISTRATION)
     Route: 042
     Dates: start: 20230201, end: 20230201
  8. DURVALUMAB [Suspect]
     Active Substance: DURVALUMAB
     Dosage: 1500 MG, OTHER (ONCE/SINGLE ADMINISTRATION)
     Route: 042
     Dates: start: 20230303, end: 20230303
  9. DURVALUMAB [Suspect]
     Active Substance: DURVALUMAB
     Dosage: 1500 MG, OTHER (ONCE/SINGLE ADMINISTRATION)
     Route: 042
     Dates: start: 20230310, end: 20230310
  10. DURVALUMAB [Suspect]
     Active Substance: DURVALUMAB
     Dosage: 1500 MG, OTHER (ONCE/SINGLE ADMINISTRATION)
     Route: 042
     Dates: start: 20230324, end: 20230324
  11. TREMELIMUMAB [Suspect]
     Active Substance: TREMELIMUMAB
     Indication: Bladder cancer
     Dosage: 75 MG, OTHER (ONCE/SINGLE ADMINISTRATION)
     Route: 042
     Dates: start: 20230201, end: 20230201
  12. TREMELIMUMAB [Suspect]
     Active Substance: TREMELIMUMAB
     Dosage: 75 MG, OTHER (ONCE/SINGLE ADMINISTRATION)
     Route: 042
     Dates: start: 20230310, end: 20230310
  13. LORATADINE [Concomitant]
     Active Substance: LORATADINE
     Indication: Pruritus
     Route: 048
     Dates: start: 20230208

REACTIONS (1)
  - Drug-induced liver injury [Not Recovered/Not Resolved]

NARRATIVE: CASE EVENT DATE: 20230403
